FAERS Safety Report 10993847 (Version 2)
Quarter: 2015Q2

REPORT INFORMATION
  Report Type: Spontaneous
  Country: US (occurrence: US)
  Receive Date: 20150407
  Receipt Date: 20150415
  Transmission Date: 20150821
  Serious: Yes (Hospitalization)
  Sender: FDA-Public Use
  Company Number: US-UNITED THERAPEUTICS-UNT-2015-003628

PATIENT
  Age: 19 Year
  Sex: Male
  Weight: 90.7 kg

DRUGS (2)
  1. REMODULIN [Suspect]
     Active Substance: TREPROSTINIL
     Indication: PULMONARY ARTERIAL HYPERTENSION
     Dosage: 0.094 ?G/KG, CONTINUING
     Route: 041
     Dates: start: 20130116
  2. TRACLEER [Concomitant]
     Active Substance: BOSENTAN\BOSENTAN MONOHYDRATE
     Indication: PRODUCT USED FOR UNKNOWN INDICATION

REACTIONS (5)
  - Device related infection [Unknown]
  - Drug dose omission [Unknown]
  - Adverse event [Unknown]
  - Device dislocation [Unknown]
  - Malaise [Unknown]

NARRATIVE: CASE EVENT DATE: 201503
